FAERS Safety Report 18548378 (Version 1)
Quarter: 2020Q4

REPORT INFORMATION
  Report Type: Spontaneous
  Country: US (occurrence: US)
  Receive Date: 20201125
  Receipt Date: 20201125
  Transmission Date: 20210114
  Serious: No
  Sender: FDA-Public Use
  Company Number: US-JNJFOC-20201132271

PATIENT
  Sex: Female

DRUGS (4)
  1. PARACETAMOL [Suspect]
     Active Substance: ACETAMINOPHEN
     Indication: PAIN
  2. IBUPROFEN. [Suspect]
     Active Substance: IBUPROFEN
     Indication: CUTANEOUS VASCULITIS
     Route: 065
  3. PARACETAMOL [Suspect]
     Active Substance: ACETAMINOPHEN
     Indication: CUTANEOUS VASCULITIS
     Route: 065
  4. IBUPROFEN. [Suspect]
     Active Substance: IBUPROFEN
     Indication: PAIN

REACTIONS (1)
  - Product use in unapproved indication [Unknown]
